FAERS Safety Report 22191544 (Version 1)
Quarter: 2023Q2

REPORT INFORMATION
  Report Type: Spontaneous
  Country: US (occurrence: US)
  Receive Date: 20230410
  Receipt Date: 20230410
  Transmission Date: 20230722
  Serious: No
  Sender: FDA-Public Use
  Company Number: US-GLAXOSMITHKLINE-US2023AMR048547

PATIENT

DRUGS (12)
  1. DICLOFENAC SODIUM [Suspect]
     Active Substance: DICLOFENAC SODIUM
     Indication: Product used for unknown indication
     Dosage: 75 MG, BID (1 TAB TWICE DAILY)
     Route: 065
  2. CABOTEGRAVIR [Concomitant]
     Active Substance: CABOTEGRAVIR
     Indication: HIV infection
     Dosage: UNK UNK, MO (600 MG/ 900 MG)
     Route: 030
     Dates: start: 20220811
  3. CABOTEGRAVIR [Concomitant]
     Active Substance: CABOTEGRAVIR
     Dosage: UNK UNK, Z EVERY 2 MONTHS (600 MG/ 900 MG) THEREAFTER
     Route: 030
     Dates: start: 20220811
  4. CABOTEGRAVIR [Concomitant]
     Active Substance: CABOTEGRAVIR
     Dosage: UNK UNK, Z EVERY 2 MONTHS (600 MG/ 900 MG) THEREAFTER
     Route: 030
     Dates: start: 20220912
  5. CABOTEGRAVIR [Concomitant]
     Active Substance: CABOTEGRAVIR
     Dosage: UNK UNK, Z EVERY 2 MONTHS (600 MG/ 900 MG) THEREAFTER
     Route: 030
     Dates: start: 20221114
  6. CABOTEGRAVIR [Concomitant]
     Active Substance: CABOTEGRAVIR
     Dosage: UNK UNK, Z EVERY 2 MONTHS (600 MG/ 900 MG) THEREAFTER
     Route: 030
     Dates: start: 20230117
  7. CABOTEGRAVIR [Concomitant]
     Active Substance: CABOTEGRAVIR
     Dosage: UNK UNK, Z EVERY 2 MONTHS (600 MG/ 900 MG) THEREAFTER
     Route: 030
     Dates: start: 20230309
  8. ACYCLOVIR [Concomitant]
     Active Substance: ACYCLOVIR
     Indication: Product used for unknown indication
     Dosage: 400 MG, BID (1 TAB TWICE DAILY)
     Route: 065
  9. CYCLOBENZAPRINE [Concomitant]
     Active Substance: CYCLOBENZAPRINE
     Indication: Product used for unknown indication
     Dosage: 10 MG, QD (1 TAB AT BEDTIME)
     Route: 065
  10. SILDENAFIL [Concomitant]
     Active Substance: SILDENAFIL
     Indication: Product used for unknown indication
     Dosage: 100 MG, QD (1 TAB DAILY AS NEEDED)
     Route: 065
  11. TESTOSTERONE [Concomitant]
     Active Substance: TESTOSTERONE
     Indication: Product used for unknown indication
     Dosage: 1.62 % GEL PUM APPLY ONE PUMP EACH MORNING
     Route: 065
  12. ZOLPIDEM [Concomitant]
     Active Substance: ZOLPIDEM TARTRATE
     Indication: Product used for unknown indication
     Dosage: 10 MG, QD (1 TAB AT BEDTIME)
     Route: 065

REACTIONS (1)
  - Blood HIV RNA increased [Unknown]

NARRATIVE: CASE EVENT DATE: 20220811
